FAERS Safety Report 12876499 (Version 1)
Quarter: 2016Q4

REPORT INFORMATION
  Report Type: Spontaneous
  Country: US (occurrence: US)
  Receive Date: 20161021
  Receipt Date: 20161021
  Transmission Date: 20170207
  Serious: Yes (Hospitalization)
  Sender: FDA-Public Use
  Company Number: None

PATIENT
  Sex: Female
  Weight: 15.7 kg

DRUGS (9)
  1. DOXORUBICIN HYDROCHLORIDE. [Suspect]
     Active Substance: DOXORUBICIN HYDROCHLORIDE
     Dates: end: 20160719
  2. DEXAMETHASONE. [Suspect]
     Active Substance: DEXAMETHASONE
     Dates: end: 20160804
  3. MERCAPTOPURINE. [Suspect]
     Active Substance: MERCAPTOPURINE
     Dates: end: 20160629
  4. CYCLOPHOSPHAMIDE. [Suspect]
     Active Substance: CYCLOPHOSPHAMIDE
     Dates: end: 20160826
  5. METHOTREXATE. [Suspect]
     Active Substance: METHOTREXATE
     Dates: end: 20160902
  6. VINCRISTINE SULFATE. [Suspect]
     Active Substance: VINCRISTINE SULFATE
     Dates: end: 20160909
  7. ONCASPAR [Suspect]
     Active Substance: PEGASPARGASE
     Dates: end: 20160909
  8. THIOGUANINE (6-TG) [Suspect]
     Active Substance: THIOGUANINE ANHYDROUS
     Dates: end: 20160908
  9. CYTARABINE. [Suspect]
     Active Substance: CYTARABINE
     Dates: end: 20160905

REACTIONS (11)
  - Pericardial effusion [None]
  - Sepsis [None]
  - Pathogen resistance [None]
  - Left ventricular dysfunction [None]
  - Bacteraemia [None]
  - Metabolic acidosis [None]
  - Tachycardia [None]
  - Blood lactic acid increased [None]
  - Shock [None]
  - Blood culture positive [None]
  - Brain natriuretic peptide increased [None]

NARRATIVE: CASE EVENT DATE: 20160909
